FAERS Safety Report 12435666 (Version 1)
Quarter: 2016Q2

REPORT INFORMATION
  Report Type: Spontaneous
  Country: US (occurrence: US)
  Receive Date: 20160603
  Receipt Date: 20160603
  Transmission Date: 20160815
  Serious: Yes (Hospitalization, Other)
  Sender: FDA-Public Use
  Company Number: US-ROCHE-1701700

PATIENT
  Age: 63 Year
  Sex: Male

DRUGS (1)
  1. CAPECITABINE. [Suspect]
     Active Substance: CAPECITABINE
     Indication: ADENOCARCINOMA OF COLON
     Dosage: 4 CYCLES OF CAPECITABIN ON DAYS 1-14 EVERY 21 DAYS
     Route: 048

REACTIONS (2)
  - Enteritis [Recovered/Resolved]
  - Palmar-plantar erythrodysaesthesia syndrome [Unknown]
